FAERS Safety Report 5312478-X (Version None)
Quarter: 2007Q2

REPORT INFORMATION
  Report Type: 
  Country: None (occurrence: None)
  Receive Date: 20070430
  Receipt Date: 20070423
  Transmission Date: 20071010
  Serious: Yes (Death)
  Sender: FDA-Public Use
  Company Number: JP-BRISTOL-MYERS SQUIBB COMPANY-13692413

PATIENT
  Age: 64 Year
  Sex: Female

DRUGS (7)
  1. GATIFLO TABS 100 MG [Suspect]
     Indication: URINARY TRACT INFECTION
     Dosage: THERAPY DISCONTINUED ON 01-JAN-2007 AND RESTARTED ON 09-JAN-2007
     Route: 048
     Dates: start: 20061226, end: 20070110
  2. GASRICK D [Concomitant]
     Route: 048
     Dates: start: 20060916, end: 20070112
  3. VALERIN [Concomitant]
     Route: 048
     Dates: start: 20061004, end: 20070112
  4. MEKITACK [Concomitant]
     Route: 048
     Dates: start: 20061016, end: 20070112
  5. PERAPRIN [Concomitant]
     Route: 048
     Dates: start: 20061214, end: 20070112
  6. NORVASC [Concomitant]
     Route: 048
     Dates: start: 20061227, end: 20070112
  7. TOPHARMIN [Concomitant]
     Route: 048
     Dates: start: 20061014, end: 20070112

REACTIONS (4)
  - DISSEMINATED INTRAVASCULAR COAGULATION [None]
  - HYPERGLYCAEMIA [None]
  - MULTI-ORGAN FAILURE [None]
  - RENAL FAILURE [None]
